FAERS Safety Report 23647058 (Version 1)
Quarter: 2024Q1

REPORT INFORMATION
  Report Type: Other
  Country: JP (occurrence: JP)
  Receive Date: 20240319
  Receipt Date: 20240319
  Transmission Date: 20240410
  Serious: Yes (Hospitalization, Other)
  Sender: FDA-Public Use
  Company Number: JP-Guardian Drug Company-2154519

PATIENT
  Age: 19 Year
  Sex: Female

DRUGS (9)
  1. CHILDRENS IBUPROFEN [Suspect]
     Active Substance: IBUPROFEN
     Route: 048
  2. CAFFEINE [Suspect]
     Active Substance: CAFFEINE
     Route: 048
  3. LITHIUM [Concomitant]
     Active Substance: LITHIUM
     Route: 065
  4. ESCITALOPRAM [Suspect]
     Active Substance: ESCITALOPRAM OXALATE
     Route: 048
  5. DEXTROMETHORPHAN [Suspect]
     Active Substance: DEXTROMETHORPHAN
     Route: 048
  6. ACETAMINOPHEN [Suspect]
     Active Substance: ACETAMINOPHEN
     Route: 048
  7. METHYLEPHEDRINE [Suspect]
     Active Substance: METHYLEPHEDRINE
     Route: 048
  8. DIHYDROCODEINE [Suspect]
     Active Substance: DIHYDROCODEINE
     Route: 048
  9. CHLORPHENIRAMINE MALEATE [Suspect]
     Active Substance: CHLORPHENIRAMINE MALEATE
     Route: 048

REACTIONS (1)
  - Toxic encephalopathy [Recovered/Resolved]
